FAERS Safety Report 6244118-X (Version None)
Quarter: 2009Q2

REPORT INFORMATION
  Report Type: 
  Country: None (occurrence: None)
  Receive Date: 20090625
  Receipt Date: 20090619
  Transmission Date: 20091009
  Serious: Yes (Death)
  Sender: FDA-Public Use
  Company Number: TR-ELI_LILLY_AND_COMPANY-TR200906004563

PATIENT
  Age: 17 Year
  Sex: Male

DRUGS (2)
  1. HUMALOG [Suspect]
     Indication: DIABETES MELLITUS
     Dosage: 54 IU, 3/D
  2. LANTUS [Concomitant]
     Indication: DIABETES MELLITUS
     Dosage: 40 IU, DAILY (1/D)

REACTIONS (1)
  - FUNGAL INFECTION [None]
